FAERS Safety Report 5656165-7 (Version None)
Quarter: 2008Q1

REPORT INFORMATION
  Report Type: 
  Country: None (occurrence: None)
  Receive Date: 20080305
  Receipt Date: 20080220
  Transmission Date: 20080703
  Serious: Yes (Death)
  Sender: FDA-Public Use
  Company Number: 18455

PATIENT
  Age: 6 Year
  Sex: Male

DRUGS (10)
  1. CARBOPLATIN [Suspect]
     Indication: BURKITT'S LYMPHOMA
  2. VINCRISTINE [Suspect]
     Indication: BURKITT'S LYMPHOMA
  3. DOXORUBICIN HCL [Suspect]
     Indication: BURKITT'S LYMPHOMA
  4. METHOTREXATE [Suspect]
     Indication: BURKITT'S LYMPHOMA
  5. ETOPOSIDE [Suspect]
     Indication: BURKITT'S LYMPHOMA
  6. IFOSFAMIDE [Suspect]
     Indication: BURKITT'S LYMPHOMA
  7. CYCLOPHOSPHAMIDE [Suspect]
     Indication: BURKITT'S LYMPHOMA
  8. RITUXIMAB [Suspect]
     Indication: BURKITT'S LYMPHOMA
  9. CIDOFOVIR [Suspect]
     Indication: BURKITT'S LYMPHOMA
  10. PREDNISONE TAB [Suspect]
     Indication: BURKITT'S LYMPHOMA

REACTIONS (13)
  - ACUTE GRAFT VERSUS HOST DISEASE IN LIVER [None]
  - ACUTE GRAFT VERSUS HOST DISEASE IN SKIN [None]
  - APHASIA [None]
  - ATAXIA [None]
  - COMA [None]
  - DEMYELINATION [None]
  - DYSARTHRIA [None]
  - ENCEPHALOPATHY [None]
  - MYOCLONUS [None]
  - RESPIRATORY DISORDER [None]
  - SUBDURAL EFFUSION [None]
  - VIRAL DIARRHOEA [None]
  - VISION BLURRED [None]
